FAERS Safety Report 7491926-3 (Version None)
Quarter: 2011Q2

REPORT INFORMATION
  Report Type: 
  Country: None (occurrence: None)
  Receive Date: 20110511
  Receipt Date: 20110502
  Transmission Date: 20111010
  Serious: Yes (Other)
  Sender: FDA-Public Use
  Company Number: DSA_45155_2011

PATIENT
  Sex: Male

DRUGS (5)
  1. DELSYM [Suspect]
     Indication: COUGH
     Dosage: (DF)
     Dates: end: 20110101
  2. ORAP [Suspect]
     Indication: PRODUCT USED FOR UNKNOWN INDICATION
     Dosage: (DF) ( 2MG TID)
     Dates: end: 20110101
  3. ORAP [Suspect]
     Indication: PRODUCT USED FOR UNKNOWN INDICATION
     Dosage: (DF) ( 2MG TID)
     Dates: end: 20110101
  4. XENAZINE [Suspect]
     Indication: TOURETTE'S DISORDER
     Dosage: (25 MG BID ORAL), (18.75 MG BID ORAL)
     Route: 048
     Dates: start: 20110101
  5. XENAZINE [Suspect]
     Indication: TOURETTE'S DISORDER
     Dosage: (25 MG BID ORAL), (18.75 MG BID ORAL)
     Route: 048
     Dates: start: 20100310, end: 20110101

REACTIONS (2)
  - DYSARTHRIA [None]
  - DRUG ADMINISTRATION ERROR [None]
